FAERS Safety Report 10406834 (Version 1)
Quarter: 2014Q1

REPORT INFORMATION
  Report Type: Spontaneous
  Country: US (occurrence: None)
  Receive Date: 20140228
  Receipt Date: 20140228
  Transmission Date: 20141002
  Serious: No
  Sender: FDA-Public Use
  Company Number: 224984LEO

PATIENT
  Age: 60 Year
  Sex: Female

DRUGS (1)
  1. PICATO [Suspect]
     Indication: ACTINIC KERATOSIS
     Dosage: FOR 3 DAYS
     Route: 061
     Dates: start: 20131107, end: 20131109

REACTIONS (3)
  - Application site erythema [None]
  - Application site vesicles [None]
  - Application site scab [None]
